FAERS Safety Report 24437979 (Version 2)
Quarter: 2025Q2

REPORT INFORMATION
  Report Type: Spontaneous
  Country: PT (occurrence: PT)
  Receive Date: 20241015
  Receipt Date: 20250620
  Transmission Date: 20250716
  Serious: Yes (Other)
  Sender: TEVA
  Company Number: PT-TEVA-VS-3253014

PATIENT
  Age: 12 Year
  Sex: Female
  Weight: 52.7 kg

DRUGS (1)
  1. VALPROATE SODIUM [Suspect]
     Active Substance: VALPROATE SODIUM
     Indication: Seizure
     Route: 065
     Dates: start: 2014, end: 2017

REACTIONS (3)
  - Hepatic steatosis [Unknown]
  - Transaminases increased [Unknown]
  - Drug-induced liver injury [Unknown]

NARRATIVE: CASE EVENT DATE: 20170101
